FAERS Safety Report 4757112-2 (Version None)
Quarter: 2005Q3

REPORT INFORMATION
  Report Type: 
  Country: None (occurrence: None)
  Receive Date: 20050829
  Receipt Date: 20050817
  Transmission Date: 20060218
  Serious: Yes (Other)
  Sender: FDA-Public Use
  Company Number: 2005117220

PATIENT
  Sex: Female

DRUGS (1)
  1. CARDURA [Suspect]
     Indication: ILL-DEFINED DISORDER
     Dosage: SEE IMAGE
     Route: 048

REACTIONS (1)
  - LOSS OF CONSCIOUSNESS [None]
